FAERS Safety Report 18624499 (Version 2)
Quarter: 2021Q1

REPORT INFORMATION
  Report Type: Spontaneous
  Country: US (occurrence: US)
  Receive Date: 20201216
  Receipt Date: 20210115
  Transmission Date: 20210419
  Serious: No
  Sender: FDA-Public Use
  Company Number: US-ASTRAZENECA-2020SF53962

PATIENT
  Sex: Female
  Weight: 59 kg

DRUGS (2)
  1. SYMBICORT [Suspect]
     Active Substance: BUDESONIDE\FORMOTEROL FUMARATE DIHYDRATE
     Dosage: 2 PUFFS, TWO TIMES A DAY
     Route: 055
  2. SYMBICORT [Suspect]
     Active Substance: BUDESONIDE\FORMOTEROL FUMARATE DIHYDRATE
     Dosage: AUTHORIZED GENERIC BUDESONIDE AND FORMOTEROL AEROSOL INHALERS?2 PUFFS, TWO TIMES A DAY
     Route: 055

REACTIONS (10)
  - Weight decreased [Unknown]
  - Device delivery system issue [Unknown]
  - Device issue [Unknown]
  - Memory impairment [Unknown]
  - Ill-defined disorder [Unknown]
  - Device malfunction [Unknown]
  - Thinking abnormal [Unknown]
  - Feeling abnormal [Unknown]
  - Body height decreased [Unknown]
  - Eating disorder [Unknown]
